FAERS Safety Report 6494445-6 (Version None)
Quarter: 2009Q4

REPORT INFORMATION
  Report Type: 
  Country: None (occurrence: None)
  Receive Date: 20091214
  Receipt Date: 20090219
  Transmission Date: 20100525
  Serious: No
  Sender: FDA-Public Use
  Company Number: US-BRISTOL-MYERS SQUIBB COMPANY-14513162

PATIENT
  Age: 12 Year
  Sex: Male
  Weight: 82 kg

DRUGS (4)
  1. ABILIFY [Suspect]
     Indication: BIPOLAR DISORDER
     Dosage: INCREASED TO 15MG AND THEN TO 20MG.
     Dates: start: 20080501
  2. ABILIFY [Suspect]
     Indication: ATTENTION DEFICIT/HYPERACTIVITY DISORDER
     Dosage: INCREASED TO 15MG AND THEN TO 20MG.
     Dates: start: 20080501
  3. CONCERTA [Concomitant]
  4. METFORMIN [Concomitant]

REACTIONS (1)
  - WEIGHT INCREASED [None]
